FAERS Safety Report 6496173-X (Version None)
Quarter: 2009Q4

REPORT INFORMATION
  Report Type: 
  Country: None (occurrence: None)
  Receive Date: 20091214
  Receipt Date: 20091012
  Transmission Date: 20100525
  Serious: No
  Sender: FDA-Public Use
  Company Number: US-BRISTOL-MYERS SQUIBB COMPANY-14815500

PATIENT
  Sex: Female

DRUGS (1)
  1. ABILIFY [Suspect]
     Dosage: DECREASED TO 20MG,15MG CURRENTLY TAKING 10MG

REACTIONS (3)
  - COUGH [None]
  - OEDEMA PERIPHERAL [None]
  - PAIN IN EXTREMITY [None]
